FAERS Safety Report 25439396 (Version 1)
Quarter: 2025Q2

REPORT INFORMATION
  Report Type: Spontaneous
  Country: ES (occurrence: ES)
  Receive Date: 20250616
  Receipt Date: 20250616
  Transmission Date: 20250716
  Serious: Yes (Hospitalization)
  Sender: MERCK SHARP & DOHME LLC
  Company Number: None

PATIENT
  Age: 64 Year
  Sex: Female

DRUGS (9)
  1. DAPTOMYCIN [Suspect]
     Active Substance: DAPTOMYCIN
     Indication: Abdominal infection
     Dosage: 800 MILLIGRAM (1.6 VIAL) EVERY 24 HOURS
     Route: 042
     Dates: start: 20240127, end: 20240206
  2. Enoxaparin sodium 40 mg (4,000 IU) injection 0.4 ml pre-filled syringe [Concomitant]
     Indication: Prophylaxis
     Dosage: 40 MILLIGRAMS (1 PRE-FILLED SYRINGE) AT 20 HOURS
     Route: 058
     Dates: start: 20240127, end: 20240226
  3. AMITRIPTYLINE [Concomitant]
     Active Substance: AMITRIPTYLINE
     Indication: Fibromyalgia
     Dosage: 25 MILLIGRAM (1 CAPSULE) EVERY 24 HOURS
     Route: 048
     Dates: start: 20240127
  4. MEROPENEM [Suspect]
     Active Substance: MEROPENEM
     Indication: Abdominal infection
     Dosage: 1 GRAM (1 VIAL) EVERY 8 HOURS
     Route: 042
     Dates: start: 20240128, end: 20240206
  5. Lormetazepam 1 mg tablet [Concomitant]
     Indication: Depression
     Dosage: 2 MILLIGRAMS (2 TABLETS) AT 11 PM
     Route: 048
     Dates: start: 20110315
  6. Paracetamol 1,000 mg injectable infusion 100 ml [Concomitant]
     Indication: Pyrexia
     Dosage: 1 GRAM (100 MILLILITERS) EVERY 8 HOURS
     Route: 042
     Dates: start: 20240126, end: 20240218
  7. OMEPRAZOLE [Concomitant]
     Active Substance: OMEPRAZOLE
     Indication: Prophylaxis
     Dosage: 20 MILLIGRAM (1 CAPSULE) EVERY 24H
     Route: 048
     Dates: start: 20240126
  8. PIPERACILLIN SODIUM\TAZOBACTAM SODIUM [Concomitant]
     Active Substance: PIPERACILLIN SODIUM\TAZOBACTAM SODIUM
     Indication: Abdominal infection
     Dosage: 4 GRAMS (1 VIAL) EVERY 6H;
     Route: 042
     Dates: start: 20240127, end: 20240128
  9. Ceftriaxone 2,000 mg IV injection [Concomitant]
     Indication: Abdominal infection
     Dosage: 2 GRAMS (1 VIAL) AT 9 HOURS
     Route: 042
     Dates: start: 20240126, end: 20240126

REACTIONS (1)
  - Hepatic cytolysis [Recovered/Resolved]

NARRATIVE: CASE EVENT DATE: 20240129
